FAERS Safety Report 8914763 (Version 1)
Quarter: 2012Q4

REPORT INFORMATION
  Report Type: 
  Country: US (occurrence: US)
  Receive Date: 20121119
  Receipt Date: 20121119
  Transmission Date: 20130627
  Serious: No
  Sender: FDA-Public Use
  Company Number: US-009507513-1210USA011745

PATIENT
  Age: 15 Year
  Sex: Female
  Weight: 58.96 kg

DRUGS (3)
  1. CLARITIN-D 24 HOUR [Suspect]
     Indication: PRODUCT USED FOR UNKNOWN INDICATION
     Dosage: 10 mg, qd
     Route: 048
  2. CLARITIN-D 24 HOUR [Suspect]
     Dosage: 50 mg, qd
     Route: 048
     Dates: start: 20120828
  3. AMOXICILLIN [Concomitant]
     Indication: INFECTION
     Dosage: UNK, Unknown

REACTIONS (2)
  - Palpitations [Not Recovered/Not Resolved]
  - Overdose [Not Recovered/Not Resolved]
